FAERS Safety Report 16435130 (Version 5)
Quarter: 2020Q1

REPORT INFORMATION
  Report Type: Report from Study
  Country: PA (occurrence: PA)
  Receive Date: 20190614
  Receipt Date: 20200327
  Transmission Date: 20200409
  Serious: Yes (Hospitalization, Other)
  Sender: FDA-Public Use
  Company Number: PHHY2019PA125793

PATIENT
  Age: 52 Year
  Sex: Male
  Weight: 86.17 kg

DRUGS (3)
  1. ISOPTIN [Concomitant]
     Active Substance: VERAPAMIL HYDROCHLORIDE
     Indication: HYPERTENSION
     Dosage: 80 MG, QD
     Route: 048
  2. GILENYA [Suspect]
     Active Substance: FINGOLIMOD HYDROCHLORIDE
     Indication: MULTIPLE SCLEROSIS
     Dosage: 0.5 MG, QD
     Route: 048
     Dates: start: 20190516
  3. COVERSYL [Concomitant]
     Active Substance: PERINDOPRIL
     Indication: HYPERTENSION
     Dosage: 5 MG, QD
     Route: 065

REACTIONS (16)
  - Anxiety [Unknown]
  - Tachycardia [Unknown]
  - Dyspnoea [Unknown]
  - Bradycardia [Recovering/Resolving]
  - Balance disorder [Not Recovered/Not Resolved]
  - Blood pressure increased [Recovering/Resolving]
  - Nervous system disorder [Unknown]
  - Product dose omission [Unknown]
  - Diplopia [Unknown]
  - Multiple sclerosis relapse [Unknown]
  - Feeling abnormal [Unknown]
  - Sciatic nerve injury [Unknown]
  - Optic neuritis [Unknown]
  - Visual impairment [Recovering/Resolving]
  - Central nervous system lesion [Unknown]
  - Disturbance in attention [Unknown]

NARRATIVE: CASE EVENT DATE: 20200127
